FAERS Safety Report 6460623-5 (Version None)
Quarter: 2009Q4

REPORT INFORMATION
  Report Type: 
  Country: None (occurrence: None)
  Receive Date: 20091130
  Receipt Date: 20091120
  Transmission Date: 20100525
  Serious: Yes (Hospitalization)
  Sender: FDA-Public Use
  Company Number: FR-JNJFOC-20091107356

PATIENT
  Age: 47 Year
  Sex: Female

DRUGS (2)
  1. RISPERDAL CONSTA [Suspect]
     Route: 030
  2. RISPERDAL CONSTA [Suspect]
     Indication: PSYCHOTIC DISORDER
     Dosage: INITIATED 4 YEARS AGO
     Route: 030

REACTIONS (5)
  - AGITATION [None]
  - CATATONIA [None]
  - CONDITION AGGRAVATED [None]
  - OVERDOSE [None]
  - THERAPEUTIC RESPONSE DECREASED [None]
